FAERS Safety Report 4606711-7 (Version None)
Quarter: 2005Q1

REPORT INFORMATION
  Report Type: 
  Country: None (occurrence: None)
  Receive Date: 20050311
  Receipt Date: 20050204
  Transmission Date: 20050727
  Serious: Yes (Death)
  Sender: FDA-Public Use
  Company Number: 2005S1000809

PATIENT
  Age: 52 Year
  Sex: Female

DRUGS (13)
  1. CLOZAPINE [Suspect]
     Indication: PSYCHOTIC DISORDER
     Dosage: 50 MG;QAM;PO
     Route: 048
  2. CLOZAPINE [Suspect]
     Indication: PSYCHOTIC DISORDER
     Dosage: 100 MG;HS;PO
     Route: 048
  3. EFFEXOR XR [Concomitant]
  4. LORAZEPAM [Concomitant]
  5. BUSPAR [Concomitant]
  6. AMOXAPINE [Concomitant]
  7. ADVAIR DISKUS 100/50 [Concomitant]
  8. COMBIVENT [Concomitant]
  9. RITALIN [Concomitant]
  10. FLEXERIL [Concomitant]
  11. PREMARIN [Concomitant]
  12. PEPCID [Concomitant]
  13. CLUCOPHAGE [Concomitant]

REACTIONS (1)
  - DEATH [None]
